FAERS Safety Report 5994712-6 (Version None)
Quarter: 2008Q4

REPORT INFORMATION
  Report Type: 
  Country: None (occurrence: None)
  Receive Date: 20081212
  Receipt Date: 20080609
  Transmission Date: 20090506
  Serious: No
  Sender: FDA-Public Use
  Company Number: US-AMGEN-KDL285471

PATIENT
  Sex: Female

DRUGS (2)
  1. ENBREL [Suspect]
     Indication: RHEUMATOID ARTHRITIS
     Route: 058
     Dates: start: 20080417
  2. METHOTREXATE [Concomitant]
     Route: 058

REACTIONS (6)
  - BLISTER [None]
  - BURNING SENSATION [None]
  - INJECTION SITE ERYTHEMA [None]
  - JOINT SWELLING [None]
  - RASH ERYTHEMATOUS [None]
  - SKIN DISCOLOURATION [None]
